FAERS Safety Report 10062114 (Version 3)
Quarter: 2014Q2

REPORT INFORMATION
  Report Type: Report from Study
  Country: US (occurrence: US)
  Receive Date: 20140407
  Receipt Date: 20140625
  Transmission Date: 20141212
  Serious: Yes (Other)
  Sender: FDA-Public Use
  Company Number: US-ALEXION-A201400981

PATIENT
  Sex: 0

DRUGS (15)
  1. SOLIRIS [Suspect]
     Indication: PAROXYSMAL NOCTURNAL HAEMOGLOBINURIA
     Dosage: 900 MG, Q12D
     Route: 042
     Dates: start: 20130828
  2. SOLIRIS [Suspect]
     Dosage: 900 MG, Q12D
     Route: 042
     Dates: start: 20130828
  3. ASPRIN [Concomitant]
     Indication: ANTICOAGULANT THERAPY
     Dosage: 81 MG, UNK
     Route: 065
     Dates: start: 20130814
  4. CLARITIN                           /00917501/ [Concomitant]
     Indication: ANTIALLERGIC THERAPY
     Dosage: 10 MG, PRN
     Route: 065
     Dates: start: 20130814
  5. FIBER [Concomitant]
     Indication: PRODUCT USED FOR UNKNOWN INDICATION
     Dosage: UNK, BID
     Route: 065
     Dates: start: 20130814
  6. FLOMAX                             /01280302/ [Concomitant]
     Indication: PRODUCT USED FOR UNKNOWN INDICATION
     Dosage: 0.4 MG, UNK
     Route: 065
     Dates: start: 20130814
  7. FLONASE [Concomitant]
     Indication: PRODUCT USED FOR UNKNOWN INDICATION
     Dosage: 50 ?G, BID
     Route: 065
     Dates: start: 20130814
  8. LEXAPRO [Concomitant]
     Indication: DEPRESSION
     Dosage: 10 MG, QD
     Route: 065
     Dates: start: 20130814
  9. LIPITOR [Concomitant]
     Indication: BLOOD CHOLESTEROL DECREASED
     Dosage: 40 MG, QD
     Route: 065
     Dates: start: 20130814
  10. LOVENOX [Concomitant]
     Indication: ANTICOAGULANT THERAPY
     Dosage: 40 MG, QD
     Route: 065
     Dates: start: 20130814
  11. NORVASC [Concomitant]
     Indication: HYPERTENSION
     Dosage: 2.5 MG, QD
     Route: 065
     Dates: start: 20130813
  12. PREDNISONE [Concomitant]
     Indication: STEROID THERAPY
     Dosage: 20 MG, BID
     Route: 065
     Dates: start: 20130814
  13. PRILOSEC                           /00661201/ [Concomitant]
     Indication: GASTROOESOPHAGEAL REFLUX DISEASE
     Dosage: 60 MG, QD
     Route: 065
     Dates: start: 20130814
  14. REQUIP [Concomitant]
     Indication: SLEEP DISORDER
     Dosage: 0.5 MG, QD AT HS
     Route: 065
     Dates: start: 20130815
  15. TRAZODONE [Concomitant]
     Indication: SLEEP DISORDER
     Dosage: 50 MG, QD AT HS
     Route: 065
     Dates: start: 20130814

REACTIONS (15)
  - Transient acantholytic dermatosis [Unknown]
  - Therapy change [Not Recovered/Not Resolved]
  - Drug ineffective [Unknown]
  - Dyspnoea [Unknown]
  - Cough [Unknown]
  - Headache [Unknown]
  - Abdominal discomfort [Unknown]
  - Abdominal distension [Unknown]
  - Constipation [Unknown]
  - Memory impairment [Unknown]
  - Confusional state [Unknown]
  - Thirst [Unknown]
  - Pain in extremity [Unknown]
  - Restless legs syndrome [Unknown]
  - Fatigue [Unknown]
